FAERS Safety Report 9190093 (Version 6)
Quarter: 2013Q2

REPORT INFORMATION
  Report Type: Spontaneous
  Country: US (occurrence: US)
  Receive Date: 20130326
  Receipt Date: 20130514
  Transmission Date: 20140414
  Serious: No
  Sender: FDA-Public Use
  Company Number: US-PFIZER INC-2013096438

PATIENT
  Age: 55 Year
  Sex: Male
  Weight: 97.51 kg

DRUGS (3)
  1. ZOLOFT [Suspect]
     Indication: DEPRESSION
     Dosage: 100 MG, 1X/DAY
  2. LIADLA [Concomitant]
     Indication: COLITIS ULCERATIVE
     Dosage: 4.8 MG (4 TABLETS OF 1.2 MG), 1X/DAY
  3. PREDNISONE [Concomitant]
     Indication: COLITIS ULCERATIVE
     Dosage: 10 MG, 1X/DAY

REACTIONS (13)
  - Tooth disorder [Unknown]
  - Gingival disorder [Unknown]
  - Pain [Unknown]
  - Tension [Unknown]
  - Malaise [Unknown]
  - Drug ineffective [Unknown]
  - Tremor [Unknown]
  - Crying [Unknown]
  - Mental disorder [Unknown]
  - Emotional disorder [Unknown]
  - Oral disorder [Unknown]
  - Teeth brittle [Unknown]
  - Tooth loss [Unknown]
